FAERS Safety Report 22034456 (Version 1)
Quarter: 2023Q1

REPORT INFORMATION
  Report Type: Spontaneous
  Country: US (occurrence: US)
  Receive Date: 20230224
  Receipt Date: 20230224
  Transmission Date: 20230418
  Serious: No
  Sender: FDA-Public Use
  Company Number: US-SA-SAC20230223000896

PATIENT
  Age: 74 Year
  Sex: Female

DRUGS (16)
  1. DUPIXENT [Suspect]
     Active Substance: DUPILUMAB
     Indication: Asthma
     Dosage: 300 MG, QOW
     Route: 058
  2. GABAPENTIN [Concomitant]
     Active Substance: GABAPENTIN
  3. LASIX [Concomitant]
     Active Substance: FUROSEMIDE
  4. POTASSIUM [Concomitant]
     Active Substance: POTASSIUM
  5. PREDNISONE [Concomitant]
     Active Substance: PREDNISONE
  6. PROZAC [Concomitant]
     Active Substance: FLUOXETINE HYDROCHLORIDE
  7. TIZANIDINE HYDROCHLORIDE [Concomitant]
     Active Substance: TIZANIDINE HYDROCHLORIDE
  8. TRELEGY ELLIPTA [Concomitant]
     Active Substance: FLUTICASONE FUROATE\UMECLIDINIUM BROMIDE\VILANTEROL TRIFENATATE
  9. CALTRATE [Concomitant]
     Active Substance: CALCIUM CARBONATE
  10. CARBIDOPA AND LEVODOPA [Concomitant]
     Active Substance: CARBIDOPA\LEVODOPA
  11. HYDROXYCHLOROQUINE SULFATE [Concomitant]
     Active Substance: HYDROXYCHLOROQUINE SULFATE
  12. IPRATROPIUM [Concomitant]
     Active Substance: IPRATROPIUM
  13. PRILOSEC [Concomitant]
     Active Substance: OMEPRAZOLE MAGNESIUM
  14. TEMAZEPAM [Concomitant]
     Active Substance: TEMAZEPAM
  15. VENTOLIN HFA [Concomitant]
     Active Substance: ALBUTEROL SULFATE
  16. VITAMIN D NOS [Concomitant]
     Active Substance: VITAMIN D NOS

REACTIONS (3)
  - Red blood cell count decreased [Recovered/Resolved]
  - White blood cell count decreased [Recovered/Resolved]
  - Serum ferritin decreased [Recovered/Resolved]
